FAERS Safety Report 24178942 (Version 1)
Quarter: 2024Q3

REPORT INFORMATION
  Report Type: Spontaneous
  Country: IL (occurrence: IL)
  Receive Date: 20240806
  Receipt Date: 20240806
  Transmission Date: 20241016
  Serious: Yes (Other)
  Sender: BAUSCH AND LOMB
  Company Number: IL-BAUSCH-BL-2024-011529

PATIENT
  Age: 24 Year
  Sex: Female

DRUGS (10)
  1. DEXAMETHASONE [Suspect]
     Active Substance: DEXAMETHASONE
     Indication: Progesterone increased
     Route: 065
  2. DEXAMETHASONE [Suspect]
     Active Substance: DEXAMETHASONE
     Indication: Blood follicle stimulating hormone increased
  3. DEXAMETHASONE [Suspect]
     Active Substance: DEXAMETHASONE
     Indication: Endometrial thickening
  4. METFORMIN [Suspect]
     Active Substance: METFORMIN HYDROCHLORIDE
     Indication: Type 2 diabetes mellitus
     Route: 065
  5. ESTRADIOL [Concomitant]
     Active Substance: ESTRADIOL
     Indication: Progesterone increased
  6. ESTRADIOL [Concomitant]
     Active Substance: ESTRADIOL
     Indication: Blood follicle stimulating hormone increased
     Dosage: LOW DOSE
     Route: 048
  7. ESTRADIOL [Concomitant]
     Active Substance: ESTRADIOL
     Indication: Endometrial thickening
     Route: 067
  8. TESTOSTERONE [Concomitant]
     Active Substance: TESTOSTERONE
     Indication: Hormone replacement therapy
     Route: 062
  9. FOLLITROPIN\LUTROPIN ALFA [Concomitant]
     Active Substance: FOLLITROPIN\LUTROPIN ALFA
     Indication: Controlled ovarian stimulation
  10. ENOXAPARIN SODIUM [Concomitant]
     Active Substance: ENOXAPARIN SODIUM
     Indication: Factor V Leiden mutation
     Route: 058

REACTIONS (2)
  - Diabetes mellitus [Recovering/Resolving]
  - Maternal exposure during pregnancy [Unknown]
